FAERS Safety Report 5391534-4 (Version None)
Quarter: 2007Q3

REPORT INFORMATION
  Report Type: 
  Country: None (occurrence: None)
  Receive Date: 20070719
  Receipt Date: 20070711
  Transmission Date: 20080115
  Serious: Yes (Hospitalization)
  Sender: FDA-Public Use
  Company Number: AU-PURDUE-USA_2007_0028213

PATIENT
  Age: 25 Year
  Sex: Female

DRUGS (5)
  1. OXYCODONE HCL [Suspect]
     Indication: DRUG USE FOR UNKNOWN INDICATION
     Dosage: 10 MG, QID
  2. DURAGESIC-100 [Suspect]
     Indication: DRUG USE FOR UNKNOWN INDICATION
     Dosage: 12 MCG/HR, UNK
     Route: 062
  3. EPILIM [Concomitant]
  4. LAMOTRIGINE [Concomitant]
  5. LEXAPRO [Concomitant]

REACTIONS (1)
  - CYANOSIS [None]
